FAERS Safety Report 6620134-0 (Version None)
Quarter: 2010Q1

REPORT INFORMATION
  Report Type: 
  Country: None (occurrence: None)
  Receive Date: 20100309
  Receipt Date: 20060328
  Transmission Date: 20100710
  Serious: Yes (Hospitalization)
  Sender: FDA-Public Use
  Company Number: HQWYE562628MAR06

PATIENT
  Sex: Male
  Weight: 74.91 kg

DRUGS (5)
  1. NEUMEGA [Suspect]
     Indication: THROMBOCYTOPENIA
     Dosage: 2.5 MG AS REQUIRED
     Route: 058
     Dates: start: 20050922, end: 20050922
  2. METOPROLOL SUCCINATE [Concomitant]
     Dosage: DOSE DETAILS NOT PROVIDED
     Route: 065
     Dates: start: 20000101
  3. NEUPOGEN [Concomitant]
     Dosage: DOSE DETAILS NOT PROVIDED
     Route: 065
     Dates: start: 20050831, end: 20050921
  4. ZOFRAN [Concomitant]
     Indication: PROPHYLAXIS OF NAUSEA AND VOMITING
     Dosage: DOSE NOT PROVIDED/TWICE PER DAY
     Route: 048
     Dates: start: 20050914, end: 20050916
  5. ARANESP [Concomitant]
     Dosage: DOSE DETAILS NOT PROVIDED
     Route: 065
     Dates: start: 20050831, end: 20050921

REACTIONS (2)
  - MALAISE [None]
  - NAUSEA [None]
